FAERS Safety Report 7554895-3 (Version None)
Quarter: 2011Q2

REPORT INFORMATION
  Report Type: 
  Country: None (occurrence: None)
  Receive Date: 20110617
  Receipt Date: 20110608
  Transmission Date: 20111010
  Serious: Yes (Hospitalization)
  Sender: FDA-Public Use
  Company Number: US-CELGENEUS-163-50794-11043236

PATIENT
  Sex: Female
  Weight: 65.4 kg

DRUGS (18)
  1. BROAD SPECTRUM ANTIBIOTICS [Concomitant]
     Route: 065
     Dates: start: 20110422
  2. VANCOMYCIN [Concomitant]
     Route: 065
  3. PRILOSEC [Concomitant]
     Dosage: 40 MILLIGRAM
     Route: 048
  4. FLEXERIL [Concomitant]
     Indication: MUSCLE SPASMS
     Dosage: 10 MILLIGRAM
     Route: 065
  5. LINEZOLID [Concomitant]
     Route: 065
     Dates: start: 20110101, end: 20110101
  6. PLATELETS [Concomitant]
     Route: 051
     Dates: start: 20110510, end: 20110510
  7. VIDAZA [Suspect]
     Dosage: 75 MILLIGRAM/SQ. METER
     Route: 051
     Dates: start: 20110414, end: 20110420
  8. CELECOXIB [Concomitant]
     Dosage: 200 MILLIGRAM
     Route: 048
  9. ACYCLOVIR [Concomitant]
     Dosage: 400 MILLIGRAM
     Route: 065
  10. ALBUTEROL SULFATE AUTOHALER [Concomitant]
     Route: 065
  11. RED BLOOD CELLS [Concomitant]
     Route: 051
     Dates: start: 20110510, end: 20110510
  12. MIDOSTAURIN [Suspect]
     Dosage: 75 MILLIGRAM
     Route: 048
     Dates: start: 20110421, end: 20110421
  13. MULTI-VITAMINS [Concomitant]
     Dosage: 1
     Route: 048
  14. COMPAZINE [Concomitant]
     Indication: NAUSEA
     Dosage: 10 MILLIGRAM
     Route: 065
  15. OXYCODONE HCL [Concomitant]
     Indication: PAIN
     Dosage: 5 MILLIGRAM
     Route: 048
  16. NEUPOGEN [Concomitant]
     Route: 065
  17. MEROPENEM [Concomitant]
     Indication: DIVERTICULITIS
     Route: 065
  18. FLUCONAZOLE [Concomitant]
     Dosage: 400 MILLIGRAM
     Route: 048

REACTIONS (2)
  - LARGE INTESTINE PERFORATION [None]
  - ABSCESS [None]
